FAERS Safety Report 9878594 (Version 1)
Quarter: 2014Q1

REPORT INFORMATION
  Report Type: Spontaneous
  Country: US (occurrence: US)
  Receive Date: 20140206
  Receipt Date: 20140206
  Transmission Date: 20141002
  Serious: No
  Sender: FDA-Public Use
  Company Number: US-ALLERGAN-1312355US

PATIENT
  Age: 50 Year
  Sex: Female

DRUGS (1)
  1. BOTOX [Suspect]
     Indication: TEMPOROMANDIBULAR JOINT SYNDROME
     Dosage: 80 UNITS, SINGLE
     Route: 030
     Dates: start: 20130808, end: 20130808

REACTIONS (3)
  - Off label use [Unknown]
  - Poor quality drug administered [Unknown]
  - Drug ineffective [Unknown]
